FAERS Safety Report 5726996-3 (Version None)
Quarter: 2008Q2

REPORT INFORMATION
  Report Type: 
  Country: None (occurrence: None)
  Receive Date: 20080505
  Receipt Date: 20080424
  Transmission Date: 20081010
  Serious: Yes (Life-Threatening, Disabling)
  Sender: FDA-Public Use
  Company Number: GB-ELI_LILLY_AND_COMPANY-GB200804006433

PATIENT
  Age: 36 Year
  Sex: Male

DRUGS (1)
  1. ZYPREXA [Suspect]
     Indication: HALLUCINATION, AUDITORY
     Dosage: 10 MG, UNK
     Route: 048
     Dates: start: 20070701, end: 20070904

REACTIONS (4)
  - ATRIAL FIBRILLATION [None]
  - BLINDNESS [None]
  - INTRACRANIAL PRESSURE INCREASED [None]
  - SUPERIOR SAGITTAL SINUS THROMBOSIS [None]
